FAERS Safety Report 10458047 (Version 1)
Quarter: 2014Q3

REPORT INFORMATION
  Report Type: Spontaneous
  Country: US (occurrence: US)
  Receive Date: 20140916
  Receipt Date: 20140916
  Transmission Date: 20150326
  Serious: Yes (Hospitalization, Other)
  Sender: FDA-Public Use
  Company Number: PHHY2014US119058

PATIENT

DRUGS (2)
  1. HEPARIN [Suspect]
     Active Substance: HEPARIN SODIUM
  2. PROTAMINE [Suspect]
     Active Substance: PROTAMINE

REACTIONS (3)
  - Hypotension [Unknown]
  - Pulseless electrical activity [Unknown]
  - Graft haemorrhage [Unknown]
